FAERS Safety Report 4879045-3 (Version None)
Quarter: 2005Q4

REPORT INFORMATION
  Report Type: 
  Country: None (occurrence: None)
  Receive Date: 20051209
  Receipt Date: 20050602
  Transmission Date: 20060501
  Serious: Yes (Death, Other)
  Sender: FDA-Public Use
  Company Number: USA-2005-0019114

PATIENT
  Age: 22 Year
  Sex: Male
  Weight: 127 kg

DRUGS (4)
  1. OXYCONTIN [Suspect]
  2. OPIOIDS [Suspect]
  3. CAFFEINE (CAFFEINE) [Suspect]
  4. OXYMORPHONE HYDROCHLORIDE [Suspect]

REACTIONS (4)
  - ACCIDENTAL OVERDOSE [None]
  - CARDIAC ARREST [None]
  - COMA [None]
  - POLYSUBSTANCE ABUSE [None]
